FAERS Safety Report 7495024-4 (Version None)
Quarter: 2011Q2

REPORT INFORMATION
  Report Type: 
  Country: None (occurrence: None)
  Receive Date: 20110520
  Receipt Date: 20110512
  Transmission Date: 20111010
  Serious: Yes (Hospitalization)
  Sender: FDA-Public Use
  Company Number: BR-ELI_LILLY_AND_COMPANY-BR201105003921

PATIENT
  Sex: Female

DRUGS (2)
  1. HUMALOG [Suspect]
     Indication: DIABETES MELLITUS
     Dosage: 7 IU, EACH MORNING
     Route: 065
  2. HUMALOG [Suspect]
     Dosage: 4 IU, QD
     Route: 065

REACTIONS (2)
  - HYPERGLYCAEMIA [None]
  - SURGERY [None]
